FAERS Safety Report 16726835 (Version 2)
Quarter: 2019Q3

REPORT INFORMATION
  Report Type: Report from Study
  Country: US (occurrence: US)
  Receive Date: 20190821
  Receipt Date: 20190903
  Transmission Date: 20191005
  Serious: Yes (Hospitalization, Other)
  Sender: FDA-Public Use
  Company Number: US-GILEAD-2019-0424404

PATIENT
  Age: 65 Year
  Sex: Male

DRUGS (1)
  1. ELVITEGRAVIR/COBICISTAT/EMTRICITABINE/TENOFOVIR ALAFENAMIDE [Suspect]
     Active Substance: COBICISTAT\ELVITEGRAVIR\EMTRICITABINE\TENOFOVIR
     Indication: PROPHYLAXIS
     Dosage: 510 MG, QD
     Route: 048
     Dates: start: 201701

REACTIONS (7)
  - Hypertension [Unknown]
  - Staphylococcal infection [Recovered/Resolved]
  - Rheumatoid arthritis [Unknown]
  - Blood cholesterol increased [Unknown]
  - Arthropod bite [Recovered/Resolved]
  - Nightmare [Unknown]
  - Thyroid disorder [Unknown]

NARRATIVE: CASE EVENT DATE: 2017
